FAERS Safety Report 12091234 (Version 1)
Quarter: 2016Q1

REPORT INFORMATION
  Report Type: Spontaneous
  Country: TR (occurrence: TR)
  Receive Date: 20160218
  Receipt Date: 20160218
  Transmission Date: 20160526
  Serious: Yes (Hospitalization)
  Sender: FDA-Public Use
  Company Number: TR-MYLANLABS-2016M1006079

PATIENT

DRUGS (1)
  1. METFORMIN [Suspect]
     Active Substance: METFORMIN HYDROCHLORIDE
     Indication: PRODUCT USED FOR UNKNOWN INDICATION
     Dosage: 50 TABLETS OF METFORMIN (50G)
     Route: 048

REACTIONS (5)
  - Acute kidney injury [Recovering/Resolving]
  - Suicide attempt [Recovering/Resolving]
  - Lactic acidosis [Recovering/Resolving]
  - Myocardial ischaemia [Recovering/Resolving]
  - Intentional overdose [Recovering/Resolving]
